FAERS Safety Report 6251693-8 (Version None)
Quarter: 2009Q2

REPORT INFORMATION
  Report Type: 
  Country: None (occurrence: None)
  Receive Date: 20090630
  Receipt Date: 20090617
  Transmission Date: 20091009
  Serious: Yes (Other)
  Sender: FDA-Public Use
  Company Number: AU-MYLANLABS-2009S1010747

PATIENT
  Age: 71 Year
  Sex: Female

DRUGS (1)
  1. TEMAZE [Suspect]
     Indication: INSOMNIA
     Route: 048
     Dates: start: 20090518, end: 20090518

REACTIONS (2)
  - AMNESIA [None]
  - SOMNAMBULISM [None]
